FAERS Safety Report 8379100-X (Version None)
Quarter: 2012Q2

REPORT INFORMATION
  Report Type: 
  Country: None (occurrence: None)
  Receive Date: 20120522
  Receipt Date: 20120522
  Transmission Date: 20120825
  Serious: Yes (Hospitalization)
  Sender: FDA-Public Use
  Company Number: None

PATIENT
  Age: 21 Year
  Sex: Male
  Weight: 77.3 kg

DRUGS (2)
  1. CHLORPHENIRAMINE MALEATE [Suspect]
     Indication: SUBSTANCE USE
     Dates: start: 20120507, end: 20120509
  2. DEXTROMETHORPHAN HYDROBROMIDE [Suspect]
     Indication: SUBSTANCE USE
     Dates: start: 20120507, end: 20120509

REACTIONS (3)
  - INCORRECT DOSE ADMINISTERED [None]
  - INTENTIONAL DRUG MISUSE [None]
  - CONFUSIONAL STATE [None]
